FAERS Safety Report 13336635 (Version 2)
Quarter: 2017Q2

REPORT INFORMATION
  Report Type: Spontaneous
  Country: US (occurrence: US)
  Receive Date: 20170315
  Receipt Date: 20170421
  Transmission Date: 20170830
  Serious: Yes (Death, Hospitalization)
  Sender: FDA-Public Use
  Company Number: US-ASTELLAS-2017US009752

PATIENT
  Age: 98 Year
  Sex: Male

DRUGS (1)
  1. XTANDI [Suspect]
     Active Substance: ENZALUTAMIDE
     Indication: PROSTATE CANCER
     Route: 048
     Dates: start: 20161021, end: 20170305

REACTIONS (3)
  - Pleural effusion [Unknown]
  - Respiratory symptom [Unknown]
  - Death [Fatal]

NARRATIVE: CASE EVENT DATE: 20170305
